FAERS Safety Report 6435081-7 (Version None)
Quarter: 2009Q4

REPORT INFORMATION
  Report Type: 
  Country: None (occurrence: None)
  Receive Date: 20091109
  Receipt Date: 20091109
  Transmission Date: 20100525
  Serious: Yes (Other)
  Sender: FDA-Public Use
  Company Number: None

PATIENT
  Age: 47 Year
  Sex: Female
  Weight: 70.3075 kg

DRUGS (1)
  1. ARMOUR THYROID 180 MCG FOREST PHARMACEUTICAL [Suspect]
     Indication: HYPOTHYROIDISM
     Dosage: 1 TAB 1 QAM PO
     Route: 048
     Dates: start: 20080501, end: 20091029

REACTIONS (4)
  - CONDITION AGGRAVATED [None]
  - DEPRESSION [None]
  - PALPITATIONS [None]
  - PRODUCT SUBSTITUTION ISSUE [None]
